FAERS Safety Report 8217209-1 (Version None)
Quarter: 2012Q1

REPORT INFORMATION
  Report Type: 
  Country: None (occurrence: None)
  Receive Date: 20120313
  Receipt Date: 20120228
  Transmission Date: 20120608
  Serious: Yes (Other)
  Sender: FDA-Public Use
  Company Number: TPA2012A00614

PATIENT
  Age: 56 Year
  Sex: Male

DRUGS (9)
  1. UBIRON (URSODEOXYCHOLIC ACID) [Concomitant]
  2. ASPIRIN [Concomitant]
  3. ANTOBRON (AMBROXOL HYDROCHLORIDE) [Concomitant]
  4. MUCOSTA (REBAMIPIDE) [Concomitant]
  5. INFLUENZA HA VACCINE (INFLUENZA VIRUS VACCINE POLYVALENT) [Concomitant]
  6. UNISIA (AMLODIPINE BESILATE) [Concomitant]
  7. ALUMINIUM  SILICATE [Concomitant]
  8. FEBURIC (FEBUXOSTAT) [Suspect]
     Indication: HYPERURICAEMIA
     Dosage: 10 MG (10 MG, 1 IN 1 D), PER ORAL
     Route: 048
     Dates: start: 20111028, end: 20111214
  9. ALLERGIN (DIPHENHYDRAMINE HYDROCHLORIDE) [Concomitant]

REACTIONS (8)
  - SKIN EXFOLIATION [None]
  - PRURITUS [None]
  - RASH [None]
  - ASPARTATE AMINOTRANSFERASE INCREASED [None]
  - CONDITION AGGRAVATED [None]
  - BLOOD ALKALINE PHOSPHATASE INCREASED [None]
  - BILE DUCT OBSTRUCTION [None]
  - LIVER DISORDER [None]
